FAERS Safety Report 13039721 (Version 1)
Quarter: 2016Q4

REPORT INFORMATION
  Report Type: Spontaneous
  Country: US (occurrence: US)
  Receive Date: 20161218
  Receipt Date: 20161218
  Transmission Date: 20170207
  Serious: Yes (Disabling)
  Sender: FDA-Public Use
  Company Number: None

PATIENT
  Age: 59 Year
  Sex: Female
  Weight: 72 kg

DRUGS (19)
  1. CALCIUM [Concomitant]
     Active Substance: CALCIUM
  2. FLAXSEED [Concomitant]
     Active Substance: FLAX SEED
  3. LEVOTHYROXINE. [Concomitant]
     Active Substance: LEVOTHYROXINE
  4. TOPAMAX [Concomitant]
     Active Substance: TOPIRAMATE
  5. STRONTIUM [Concomitant]
     Active Substance: STRONTIUM
  6. NADOLOL. [Concomitant]
     Active Substance: NADOLOL
  7. BUDESONIDE. [Concomitant]
     Active Substance: BUDESONIDE
  8. LATAONPROST [Concomitant]
  9. MULTIVITAMIN WITHOUT IRON [Concomitant]
  10. VITAMIN K [Concomitant]
     Active Substance: PHYTONADIONE
  11. VITAMIN E [Concomitant]
     Active Substance: .ALPHA.-TOCOPHEROL
  12. MAXALT [Concomitant]
     Active Substance: RIZATRIPTAN BENZOATE
  13. VITAMIN D [Concomitant]
     Active Substance: CHOLECALCIFEROL
  14. TRIPLEFLEX [Concomitant]
  15. CHROMIUM GTF [Concomitant]
  16. LYSINE [Concomitant]
     Active Substance: LYSINE
  17. PAROXETINE ER 12.5MG TAB [Suspect]
     Active Substance: PAROXETINE
     Indication: HOT FLUSH
     Dosage: QUANTITY:1 TABLET(S); ORAL?
     Route: 048
     Dates: start: 20160509, end: 20161027
  18. OCUGUARD [Concomitant]
     Active Substance: OCUGUARD
  19. VITAMIN C [Concomitant]
     Active Substance: ASCORBIC ACID

REACTIONS (2)
  - Colitis [None]
  - Diarrhoea [None]

NARRATIVE: CASE EVENT DATE: 20160808
